FAERS Safety Report 14668828 (Version 1)
Quarter: 2018Q1

REPORT INFORMATION
  Report Type: Spontaneous
  Country: US (occurrence: US)
  Receive Date: 20180321
  Receipt Date: 20180321
  Transmission Date: 20180509
  Serious: Yes (Hospitalization)
  Sender: FDA-Public Use
  Company Number: None

PATIENT
  Age: 49 Year
  Sex: Female
  Weight: 119.9 kg

DRUGS (11)
  1. PREGABALIN 300 MG BID [Concomitant]
  2. FENTANYL 100 MCG PATCH Q 72 HRS [Concomitant]
  3. LEVETIRACETAM 750 MG BID [Concomitant]
  4. ALBUTEROL PRN [Concomitant]
  5. CITALOPRAM 20 MG DAILY [Concomitant]
  6. METFORMIN 1000 MG BID [Concomitant]
  7. EMPAGLIFLOZIN [Suspect]
     Active Substance: EMPAGLIFLOZIN
     Indication: DIABETES MELLITUS
     Route: 048
  8. TOPIRAMATE 50 MG BID [Concomitant]
  9. LISINOPRIL 10 MG DAILY [Concomitant]
  10. GLIPIZIDE 5 MG BID [Concomitant]
  11. DULOXETINE 60 MG DAILY [Concomitant]

REACTIONS (5)
  - Escherichia test positive [None]
  - Culture urine positive [None]
  - Hypotension [None]
  - Urinary tract infection [None]
  - Bronchitis [None]

NARRATIVE: CASE EVENT DATE: 20180125
